FAERS Safety Report 9728296 (Version 1)
Quarter: 2013Q4

REPORT INFORMATION
  Report Type: Spontaneous
  Country: ES (occurrence: ES)
  Receive Date: 20131204
  Receipt Date: 20131204
  Transmission Date: 20140711
  Serious: Yes (Other)
  Sender: FDA-Public Use
  Company Number: ES-009507513-1311ESP012813

PATIENT
  Age: 89 Year
  Sex: Male
  Weight: 81 kg

DRUGS (4)
  1. AERIUS [Suspect]
     Dosage: 5 MG, QD
     Route: 048
     Dates: start: 20130313, end: 20130627
  2. EUTIROX [Concomitant]
     Dosage: 75 MICROGRAM, QD
     Route: 048
     Dates: start: 20120213
  3. SERTRALINE HYDROCHLORIDE [Concomitant]
     Route: 048
     Dates: start: 20110425
  4. HYDROXOCOBALAMIN (+) PYRIDOXINE (+) THIAMINE [Concomitant]
     Dosage: UNK
     Route: 048
     Dates: start: 20110204

REACTIONS (3)
  - Electrocardiogram QT prolonged [Recovered/Resolved]
  - Sinus bradycardia [Recovered/Resolved]
  - Atrioventricular block first degree [Recovered/Resolved]
